FAERS Safety Report 4665301-0 (Version None)
Quarter: 2005Q2

REPORT INFORMATION
  Report Type: 
  Country: None (occurrence: None)
  Receive Date: 20050517
  Receipt Date: 20050504
  Transmission Date: 20051028
  Serious: Yes (Hospitalization, Other)
  Sender: FDA-Public Use
  Company Number: 2005007423

PATIENT
  Age: 25 Year
  Sex: Male

DRUGS (4)
  1. NEURONTIN [Suspect]
     Indication: BACK PAIN
  2. METHADONE HCL [Suspect]
     Indication: PAIN
  3. KLONOPIN [Suspect]
     Indication: SLEEP DISORDER
  4. OXYCONTIN [Suspect]
     Indication: PAIN

REACTIONS (24)
  - ACCIDENT AT WORK [None]
  - ANXIETY [None]
  - ARTHRALGIA [None]
  - BACK INJURY [None]
  - DELUSION [None]
  - DEPRESSION [None]
  - DRUG ABUSER [None]
  - DRUG INEFFECTIVE [None]
  - DRUG WITHDRAWAL SYNDROME [None]
  - INTENTIONAL MISUSE [None]
  - JOINT SPRAIN [None]
  - MIGRAINE [None]
  - MORBID THOUGHTS [None]
  - MULTIPLE DRUG OVERDOSE [None]
  - NEPHROLITHIASIS [None]
  - PANIC ATTACK [None]
  - PARANOIA [None]
  - PSYCHOTIC DISORDER [None]
  - SKIN LACERATION [None]
  - SPOUSAL ABUSE [None]
  - SUICIDAL IDEATION [None]
  - SUICIDE ATTEMPT [None]
  - TEARFULNESS [None]
  - VARICOCELE [None]
